FAERS Safety Report 10040127 (Version 1)
Quarter: 2014Q1

REPORT INFORMATION
  Report Type: Report from Study
  Country: US (occurrence: US)
  Receive Date: 20140326
  Receipt Date: 20140326
  Transmission Date: 20141002
  Serious: Yes (Other)
  Sender: FDA-Public Use
  Company Number: US-AMGEN-USACT2014020829

PATIENT
  Age: 62 Year
  Sex: Female

DRUGS (27)
  1. DENOSUMAB [Suspect]
     Indication: PLASMA CELL MYELOMA
     Dosage: 120 MG, UNK
     Route: 042
     Dates: start: 20121001
  2. VELCADE [Concomitant]
     Dosage: UNK
     Dates: start: 20121004
  3. DEXAMETHASONE [Concomitant]
     Dosage: UNK
     Dates: start: 20120917
  4. ALBUTEROL SULFATE [Concomitant]
     Dosage: UNK
     Route: 048
  5. NORTRIPTYLINE [Concomitant]
     Dosage: 10 MG, UNK, AT BED TIME
     Route: 048
  6. VITAMIN B12                        /00056201/ [Concomitant]
     Dosage: 1 ML, UNK
     Route: 030
  7. ACYCLOVIR                          /00587301/ [Concomitant]
     Dosage: 400 MG, BID
     Route: 048
  8. GABAPENTIN [Concomitant]
     Dosage: 300 MG, TID
     Route: 048
  9. CYMBALTA [Concomitant]
     Dosage: 20 MG, QD
     Route: 048
  10. DIPHENHYDRAMINE [Concomitant]
     Dosage: 25 MG, Q6H
     Route: 048
  11. ONDANSETRON [Concomitant]
     Dosage: 8 MG, Q8H
     Route: 048
  12. LEVOCETIRIZINE [Concomitant]
     Dosage: 5 MG, QD
     Route: 048
  13. PRAMIPEXOLE [Concomitant]
     Dosage: 0.5 MG, TID
     Route: 048
  14. PRAVASTATIN [Concomitant]
     Dosage: 10 MG, QD
     Route: 048
  15. ESOMEPRAZOLE [Concomitant]
     Dosage: 40 MG, QD
     Route: 048
  16. METFORMIN HCL [Concomitant]
     Dosage: UNK
     Route: 048
  17. AGGRENOX [Concomitant]
     Dosage: 1 UNK, BID
     Route: 048
  18. ZESTORETIC-20/12.5 [Concomitant]
     Dosage: 1 UNK, QD
     Route: 048
  19. ADVAIR [Concomitant]
     Dosage: 1 PUFF UNK, BID
     Route: 055
  20. AMITRIPTYLINE [Concomitant]
     Dosage: UNK
  21. LYRICA [Concomitant]
     Dosage: 25 MG, Q12H
     Route: 048
  22. ASPIRIN [Concomitant]
     Dosage: UNK
  23. TRAMADOL [Concomitant]
     Dosage: 100 MG, QD
     Route: 048
  24. CALCIUM CARBONATE/VITAMIN D3 [Concomitant]
     Dosage: UNK UNK, QD
     Route: 048
  25. CLONAZEPAM [Concomitant]
     Dosage: 2 MG, QD
     Route: 048
  26. LENALIDOMIDE [Concomitant]
     Dosage: UNK
     Dates: start: 20120917, end: 20130208
  27. PAMELOR [Concomitant]
     Dosage: UNK

REACTIONS (1)
  - Exposed bone in jaw [Recovered/Resolved]
